FAERS Safety Report 25807464 (Version 1)
Quarter: 2025Q3

REPORT INFORMATION
  Report Type: Spontaneous
  Country: TR (occurrence: TR)
  Receive Date: 20250916
  Receipt Date: 20250916
  Transmission Date: 20251020
  Serious: Yes (Death)
  Sender: MERCK SHARP & DOHME LLC
  Company Number: TR-009507513-2327999

PATIENT
  Age: 70 Year
  Sex: Female
  Weight: 100 kg

DRUGS (1)
  1. KEYTRUDA [Suspect]
     Active Substance: PEMBROLIZUMAB
     Indication: Metastases to lung
     Dates: start: 20250808, end: 20250829

REACTIONS (4)
  - Myelosuppression [Fatal]
  - Product use in unapproved indication [Unknown]
  - Aplastic anaemia [Fatal]
  - Drug interaction [Unknown]
